FAERS Safety Report 14879008 (Version 2)
Quarter: 2018Q3

REPORT INFORMATION
  Report Type: Report from Study
  Country: IT (occurrence: IT)
  Receive Date: 20180511
  Receipt Date: 20180823
  Transmission Date: 20181010
  Serious: Yes (Death, Other)
  Sender: FDA-Public Use
  Company Number: IT-ACCORD-066791

PATIENT
  Age: 36 Year
  Sex: Male

DRUGS (8)
  1. LEVOMEPROMAZINE [Suspect]
     Active Substance: LEVOMEPROMAZINE
  2. PREGABALIN. [Suspect]
     Active Substance: PREGABALIN
  3. MIRTAZAPINE. [Suspect]
     Active Substance: MIRTAZAPINE
     Route: 048
  4. CLONAZEPAM. [Suspect]
     Active Substance: CLONAZEPAM
  5. TRAZODONE [Suspect]
     Active Substance: TRAZODONE HYDROCHLORIDE
  6. ALPRAZOLAM. [Suspect]
     Active Substance: ALPRAZOLAM
  7. MORPHINE [Suspect]
     Active Substance: MORPHINE
  8. COCAINE [Suspect]
     Active Substance: COCAINE

REACTIONS (3)
  - Intentional product misuse [Fatal]
  - Acute pulmonary oedema [Fatal]
  - Drug abuse [Fatal]

NARRATIVE: CASE EVENT DATE: 201506
